FAERS Safety Report 21240380 (Version 1)
Quarter: 2022Q3

REPORT INFORMATION
  Report Type: Spontaneous
  Country: US (occurrence: None)
  Receive Date: 20220822
  Receipt Date: 20220822
  Transmission Date: 20221026
  Serious: No
  Sender: FDA-Public Use
  Company Number: 2022A284158

PATIENT
  Age: 30923 Day
  Sex: Female
  Weight: 70.3 kg

DRUGS (2)
  1. QUETIAPINE [Suspect]
     Active Substance: QUETIAPINE
     Indication: Sleep disorder
     Route: 048
     Dates: start: 20220808
  2. CARVEDILOL [Concomitant]
     Active Substance: CARVEDILOL

REACTIONS (9)
  - Blood pressure increased [Unknown]
  - Sudden onset of sleep [Unknown]
  - Feeling abnormal [Unknown]
  - Gait inability [Unknown]
  - Somnolence [Not Recovered/Not Resolved]
  - Hypokinesia [Unknown]
  - Confusional state [Not Recovered/Not Resolved]
  - Increased appetite [Unknown]
  - Off label use [Unknown]

NARRATIVE: CASE EVENT DATE: 20220808
